FAERS Safety Report 5377075-9 (Version None)
Quarter: 2007Q2

REPORT INFORMATION
  Report Type: 
  Country: None (occurrence: None)
  Receive Date: 20070628
  Receipt Date: 20070628
  Transmission Date: 20071010
  Serious: Yes (Other)
  Sender: FDA-Public Use
  Company Number: None

PATIENT
  Age: 55 Year
  Sex: Female
  Weight: 70.3075 kg

DRUGS (2)
  1. NITROGLYCERIN [Suspect]
     Indication: ANGINA PECTORIS
     Dosage: .2MG/HR PATCH ONCE DAY TRANSDERMAL
     Route: 062
     Dates: start: 20070626, end: 20070626
  2. NITROGLYCERIN [Suspect]
     Indication: DYSPNOEA
     Dosage: .2MG/HR PATCH ONCE DAY TRANSDERMAL
     Route: 062
     Dates: start: 20070626, end: 20070626

REACTIONS (8)
  - CHEST PAIN [None]
  - CHILLS [None]
  - DISORIENTATION [None]
  - DIZZINESS [None]
  - GAIT DISTURBANCE [None]
  - HEADACHE [None]
  - NAUSEA [None]
  - SCREAMING [None]
